FAERS Safety Report 9804047 (Version 3)
Quarter: 2014Q1

REPORT INFORMATION
  Report Type: Spontaneous
  Country: US (occurrence: US)
  Receive Date: 20140108
  Receipt Date: 20140212
  Transmission Date: 20141002
  Serious: Yes (Other)
  Sender: FDA-Public Use
  Company Number: PHEH2014US000559

PATIENT
  Sex: Male

DRUGS (1)
  1. DIOVAN HCT [Suspect]
     Dosage: 2 DF (VALS 160 MG, AMLO 25 MG), DAILY

REACTIONS (2)
  - Type 1 diabetes mellitus [Unknown]
  - Product container issue [Unknown]
